FAERS Safety Report 15920560 (Version 2)
Quarter: 2019Q1

REPORT INFORMATION
  Report Type: Spontaneous
  Country: AT (occurrence: AT)
  Receive Date: 20190205
  Receipt Date: 20190228
  Transmission Date: 20190417
  Serious: Yes (Other)
  Sender: FDA-Public Use
  Company Number: AT-PFM-2019-01099

PATIENT

DRUGS (12)
  1. VINORELBINE TARTRATE. [Suspect]
     Active Substance: VINORELBINE TARTRATE
     Dosage: 30 MG/M2, UNK (ON FIRST DAY)
     Route: 065
  2. MEKINIST [Suspect]
     Active Substance: TRAMETINIB DIMETHYL SULFOXIDE
     Dosage: 0.5 MG, QD (1/DAY)
     Route: 065
     Dates: start: 20180822
  3. VINORELBINE TARTRATE. [Suspect]
     Active Substance: VINORELBINE TARTRATE
     Dosage: 80 MG/M2, UNK (ON 8TH DAY)
     Route: 065
  4. CISPLATIN. [Suspect]
     Active Substance: CISPLATIN
     Indication: PRODUCT USED FOR UNKNOWN INDICATION
     Dosage: 75 MG/M2, Q3W
     Route: 065
  5. TAFINLAR [Suspect]
     Active Substance: DABRAFENIB MESYLATE
     Dosage: 50 MG, BID (2/DAY)
     Route: 065
     Dates: start: 20180822
  6. CYRAMZA [Suspect]
     Active Substance: RAMUCIRUMAB
     Indication: CHEMOTHERAPY
     Dosage: UNK
     Route: 065
     Dates: start: 2017
  7. DOCETAXEL. [Suspect]
     Active Substance: DOCETAXEL
     Indication: CHEMOTHERAPY
     Dosage: 75 MG/M2, Q3W
     Route: 065
     Dates: start: 201706, end: 201708
  8. VINORELBINE TARTRATE. [Suspect]
     Active Substance: VINORELBINE TARTRATE
     Dosage: 80 MG/M2, UNK (ON 8TH DAY)
     Route: 065
  9. CISPLATIN. [Suspect]
     Active Substance: CISPLATIN
     Dosage: 75 MG/M2, Q3W
     Route: 065
  10. VINORELBINE TARTRATE. [Suspect]
     Active Substance: VINORELBINE TARTRATE
     Indication: PRODUCT USED FOR UNKNOWN INDICATION
     Dosage: 30 MG/M2, UNK (ON FIRST DAY)
     Route: 065
  11. MEKINIST [Suspect]
     Active Substance: TRAMETINIB DIMETHYL SULFOXIDE
     Indication: MALIGNANT MELANOMA
     Dosage: 2 MG, QD (1/DAY)
     Route: 065
     Dates: start: 201607, end: 201707
  12. TAFINLAR [Suspect]
     Active Substance: DABRAFENIB MESYLATE
     Indication: MALIGNANT MELANOMA
     Dosage: 150 MG, BID (2/DAY)
     Route: 065
     Dates: start: 201607, end: 201706

REACTIONS (14)
  - Splenomegaly [Unknown]
  - Infection [Unknown]
  - Pneumonia [Recovered/Resolved]
  - Pulmonary embolism [Unknown]
  - Febrile infection [Recovered/Resolved]
  - Inflammation [Unknown]
  - Alveolitis [Unknown]
  - Haemangioma of bone [Unknown]
  - Interstitial lung disease [Unknown]
  - Pneumonia [Unknown]
  - Pneumonia [Recovered/Resolved]
  - Pyrexia [Unknown]
  - Febrile infection [Recovered/Resolved]
  - Pneumonia [Recovered/Resolved]

NARRATIVE: CASE EVENT DATE: 201607
